FAERS Safety Report 8827649 (Version 2)
Quarter: 2012Q4

REPORT INFORMATION
  Report Type: 
  Country: KR (occurrence: KR)
  Receive Date: 20121005
  Receipt Date: 20121101
  Transmission Date: 20130627
  Serious: Yes (Other)
  Sender: FDA-Public Use
  Company Number: PHHY2012KR085414

PATIENT
  Age: 72 Year
  Sex: Female

DRUGS (1)
  1. PAMIDRONATE [Suspect]
     Indication: OSTEOPOROSIS

REACTIONS (5)
  - Osteonecrosis of jaw [Unknown]
  - Sinusitis [Unknown]
  - Bone swelling [Unknown]
  - Exposed bone in jaw [Unknown]
  - Purulent discharge [Unknown]
